FAERS Safety Report 22630562 (Version 12)
Quarter: 2025Q1

REPORT INFORMATION
  Report Type: Report from Study
  Country: CA (occurrence: CA)
  Receive Date: 20230622
  Receipt Date: 20250319
  Transmission Date: 20250409
  Serious: Yes (Other)
  Sender: BAUSCH AND LOMB
  Company Number: CA-BAUSCH-BL-2023-009529

PATIENT
  Age: 20 Year
  Sex: Female
  Weight: 69.008 kg

DRUGS (8)
  1. SILIQ [Suspect]
     Active Substance: BRODALUMAB
     Indication: Psoriasis
     Dosage: 210MG/ 1.5 ML, WEEKLY (WEEK 0, 1 AND 2)
     Route: 058
     Dates: start: 20210421, end: 202105
  2. SILIQ [Suspect]
     Active Substance: BRODALUMAB
     Dosage: 210MG/1.5 ML, Q2 WEEKS
     Route: 058
     Dates: start: 202105, end: 202307
  3. SILIQ [Suspect]
     Active Substance: BRODALUMAB
     Dosage: 210MG/1.5 ML, WEEKLY
     Route: 058
     Dates: start: 20230714
  4. SILIQ [Suspect]
     Active Substance: BRODALUMAB
     Dosage: 210MG/1.5 ML, Q2 WEEKS
     Route: 058
     Dates: start: 2024, end: 20240622
  5. SILIQ [Suspect]
     Active Substance: BRODALUMAB
     Dosage: 210MG/1.5 ML, Q2,
     Route: 058
     Dates: start: 202501, end: 20250117
  6. SILIQ [Suspect]
     Active Substance: BRODALUMAB
     Dosage: 210MG/1.5 ML, Q2
     Route: 058
     Dates: start: 20250126
  7. NEURONTIN [Concomitant]
     Active Substance: GABAPENTIN
     Indication: Headache
  8. VITAMIN D [Concomitant]
     Active Substance: VITAMIN D NOS
     Indication: Vitamin D deficiency

REACTIONS (9)
  - Meniscus injury [Recovered/Resolved]
  - Bell^s palsy [Recovered/Resolved]
  - Psoriasis [Recovering/Resolving]
  - Disease recurrence [Recovering/Resolving]
  - Tooth disorder [Recovered/Resolved]
  - Stress [Unknown]
  - Streptococcal infection [Recovered/Resolved]
  - Patient dissatisfaction with treatment [Unknown]
  - Intentional product use issue [Unknown]

NARRATIVE: CASE EVENT DATE: 20230101
